FAERS Safety Report 23100696 (Version 1)
Quarter: 2023Q4

REPORT INFORMATION
  Report Type: Spontaneous
  Country: US (occurrence: None)
  Receive Date: 20231020
  Receipt Date: 20231020
  Transmission Date: 20240110
  Serious: Yes (Hospitalization)
  Sender: FDA-Public Use
  Company Number: None

PATIENT
  Age: 77 Year
  Sex: Male

DRUGS (1)
  1. TIRZEPATIDE [Suspect]
     Active Substance: TIRZEPATIDE
     Dosage: FREQUENCY : WEEKLY;?
     Route: 058
     Dates: start: 20221104, end: 20230121

REACTIONS (3)
  - Palpitations [None]
  - Product availability issue [None]
  - Atrial fibrillation [None]

NARRATIVE: CASE EVENT DATE: 20221108
